FAERS Safety Report 23834018 (Version 5)
Quarter: 2025Q1

REPORT INFORMATION
  Report Type: Spontaneous
  Country: US (occurrence: US)
  Receive Date: 20240509
  Receipt Date: 20250228
  Transmission Date: 20250409
  Serious: Yes (Disabling, Other)
  Sender: AMGEN
  Company Number: US-HORIZON THERAPEUTICS-HZN-2024-005241

PATIENT
  Age: 50 Year
  Sex: Female

DRUGS (25)
  1. TEPEZZA [Suspect]
     Active Substance: TEPROTUMUMAB-TRBW
     Indication: Graves^ disease
     Route: 042
  2. TEPEZZA [Suspect]
     Active Substance: TEPROTUMUMAB-TRBW
     Indication: Endocrine ophthalmopathy
     Route: 042
     Dates: start: 20210921
  3. TEPEZZA [Suspect]
     Active Substance: TEPROTUMUMAB-TRBW
     Dosage: 1080 MILLIGRAM, Q3WK (FOURTH INFUSION)
     Route: 042
     Dates: start: 20211126
  4. TEPEZZA [Suspect]
     Active Substance: TEPROTUMUMAB-TRBW
     Route: 042
     Dates: start: 20211217
  5. TEPEZZA [Suspect]
     Active Substance: TEPROTUMUMAB-TRBW
     Route: 042
     Dates: start: 20220114
  6. TEPEZZA [Suspect]
     Active Substance: TEPROTUMUMAB-TRBW
     Dosage: 1080 MILLIGRAM, Q3WK, (UNK INFUSION)
     Route: 042
     Dates: start: 20220204
  7. TEPEZZA [Suspect]
     Active Substance: TEPROTUMUMAB-TRBW
     Dosage: UNK, Q3WK (LAST INFUSION)
     Route: 040
     Dates: start: 2022
  8. PROAIR HFA [Concomitant]
     Active Substance: ALBUTEROL SULFATE
     Dosage: UNK UNK, Q4H (2 PFS PO)
     Dates: start: 20200522, end: 20231228
  9. OMNICEF [Concomitant]
     Active Substance: CEFDINIR
     Dosage: 300 MILLIGRAM, BID
     Route: 048
     Dates: start: 20200414, end: 20210729
  10. DRISDOL [Concomitant]
     Active Substance: ERGOCALCIFEROL
     Dosage: 50000 UNIT, QWK
     Route: 048
     Dates: start: 20200521
  11. LASIX [Concomitant]
     Active Substance: FUROSEMIDE
     Indication: Oedema
     Dosage: 20 MILLIGRAM, QD
     Route: 048
  12. MEDROL [Concomitant]
     Active Substance: METHYLPREDNISOLONE
     Route: 065
     Dates: end: 20210729
  13. OPTIVAR [Concomitant]
     Active Substance: AZELASTINE HYDROCHLORIDE
     Dosage: 1 DROP, BID (0.05 PERCENT)
     Route: 047
     Dates: end: 20231228
  14. SYMBICORT [Concomitant]
     Active Substance: BUDESONIDE\FORMOTEROL FUMARATE DIHYDRATE
     Dosage: UNK, BID ( 160 MCG-4.5 MCG/ACTUATION HFA AEROSOL INHALER)
     Route: 048
     Dates: end: 20231228
  15. DIFLUCAN [Concomitant]
     Active Substance: FLUCONAZOLE
     Route: 048
     Dates: end: 20230413
  16. ATARAX [Concomitant]
     Active Substance: HYDROXYZINE HYDROCHLORIDE
     Dosage: 50 MILLIGRAM, TID
     Route: 048
     Dates: end: 20210729
  17. CLARITIN [Concomitant]
     Active Substance: LORATADINE
     Dosage: 10 MILLIGRAM, QD
     Route: 048
     Dates: end: 20231228
  18. PATADAY [Concomitant]
     Active Substance: OLOPATADINE HYDROCHLORIDE
     Dosage: 2 DROP, BID
     Route: 047
     Dates: start: 20210302, end: 20240523
  19. ALBUTEROL SULFATE [Concomitant]
     Active Substance: ALBUTEROL SULFATE
     Dosage: UNK, Q4H (INHALE 2 PUFFS)
     Dates: start: 20230413, end: 20230413
  20. VALIUM [Concomitant]
     Active Substance: DIAZEPAM
     Indication: Anxiety
     Dosage: 10 MILLIGRAM, QD (EVERY NIGHT AT BEDTIME)
     Route: 048
     Dates: start: 20210322
  21. DIAZEPAM [Concomitant]
     Active Substance: DIAZEPAM
     Route: 048
  22. K tab [Concomitant]
     Indication: Oedema
     Dosage: 10 MILLIEQUIVALENT, QD
     Route: 048
     Dates: start: 20200424, end: 20231228
  23. POTASSIUM [Concomitant]
     Active Substance: POTASSIUM
     Dates: start: 20200527, end: 20231228
  24. ROXICODONE [Concomitant]
     Active Substance: OXYCODONE HYDROCHLORIDE
     Indication: Arthralgia
     Dosage: 5 MILLIGRAM, QD
     Route: 048
     Dates: start: 20210714
  25. SPIRIVA [Concomitant]
     Active Substance: TIOTROPIUM BROMIDE MONOHYDRATE
     Dosage: UNK UNK, QD (INHALE THE CONTENTS OF 1 CAPSULE) (18 MCG)
     Dates: start: 20210712, end: 20230413

REACTIONS (26)
  - Disability [Not Recovered/Not Resolved]
  - Physical disability [Not Recovered/Not Resolved]
  - Deafness neurosensory [Not Recovered/Not Resolved]
  - Hyperthyroidism [Unknown]
  - Emotional distress [Not Recovered/Not Resolved]
  - Economic problem [Not Recovered/Not Resolved]
  - Impaired quality of life [Not Recovered/Not Resolved]
  - Concomitant disease aggravated [Not Recovered/Not Resolved]
  - Deformity [Not Recovered/Not Resolved]
  - Anxiety [Not Recovered/Not Resolved]
  - Discomfort [Not Recovered/Not Resolved]
  - Pain [Not Recovered/Not Resolved]
  - Injury [Not Recovered/Not Resolved]
  - Tinnitus [Not Recovered/Not Resolved]
  - Auditory disorder [Unknown]
  - Pruritus [Unknown]
  - Product quality issue [Unknown]
  - Swelling of eyelid [Unknown]
  - Erythema [Unknown]
  - Conjunctival hyperaemia [Unknown]
  - Conjunctival oedema [Unknown]
  - Eye pain [Unknown]
  - Inappropriate schedule of product administration [Unknown]
  - Ear congestion [Recovering/Resolving]
  - Vision blurred [Unknown]
  - Hyperacusis [Unknown]

NARRATIVE: CASE EVENT DATE: 20220408
